FAERS Safety Report 4588489-9 (Version None)
Quarter: 2005Q1

REPORT INFORMATION
  Report Type: 
  Country: None (occurrence: None)
  Receive Date: 20050216
  Receipt Date: 20050127
  Transmission Date: 20050727
  Serious: Yes (Hospitalization)
  Sender: FDA-Public Use
  Company Number: USA050189348

PATIENT
  Sex: Male

DRUGS (4)
  1. HUMULIN N [Suspect]
     Indication: DIABETES MELLITUS
  2. LANTUS [Concomitant]
  3. ANTIBIOTIC [Concomitant]
  4. PLAVIX [Concomitant]

REACTIONS (4)
  - ASTHENIA [None]
  - DYSSTASIA [None]
  - HYPOAESTHESIA [None]
  - MALAISE [None]
